FAERS Safety Report 9335604 (Version 1)
Quarter: 2013Q2

REPORT INFORMATION
  Report Type: Spontaneous
  Country: CA (occurrence: CA)
  Receive Date: 20130605
  Receipt Date: 20130605
  Transmission Date: 20140414
  Serious: Yes (Hospitalization)
  Sender: FDA-Public Use
  Company Number: CA-BAXTER-2013BAX020195

PATIENT
  Sex: Male

DRUGS (2)
  1. DIANEAL PD101 SOLUTION WITH 1.5% DEXTROSE [Suspect]
     Indication: PERITONEAL DIALYSIS
     Route: 033
  2. DIANEAL PD101 SOLUTION WITH 1.5% DEXTROSE [Suspect]
     Indication: PERITONEAL DIALYSIS
     Route: 033

REACTIONS (3)
  - Diabetic foot [Recovering/Resolving]
  - Localised infection [Recovering/Resolving]
  - Post procedural infection [Recovering/Resolving]
